FAERS Safety Report 8985577 (Version 3)
Quarter: 2013Q1

REPORT INFORMATION
  Report Type: Spontaneous
  Country: JP (occurrence: JP)
  Receive Date: 20121226
  Receipt Date: 20130122
  Transmission Date: 20140127
  Serious: Yes (Other)
  Sender: FDA-Public Use
  Company Number: JP-JNJFOC-20121207755

PATIENT
  Age: 6 Decade
  Sex: Male

DRUGS (2)
  1. RISPERDAL [Suspect]
     Indication: SCHIZOPHRENIA
     Dosage: TWICE DAILY FOR 1 MONTH TO 1.5 MONTHS
     Route: 048
     Dates: start: 201211
  2. RISPERDAL [Suspect]
     Indication: SCHIZOPHRENIA
     Route: 048
     Dates: start: 201211

REACTIONS (3)
  - Loss of consciousness [Unknown]
  - Fall [Unknown]
  - Clonic convulsion [Unknown]
